FAERS Safety Report 20578631 (Version 9)
Quarter: 2024Q4

REPORT INFORMATION
  Report Type: Report from Study
  Country: DE (occurrence: DE)
  Receive Date: 20220310
  Receipt Date: 20241108
  Transmission Date: 20250114
  Serious: No
  Sender: ROCHE
  Company Number: DE-ROCHE-3044552

PATIENT
  Age: 37 Year
  Sex: Female

DRUGS (2)
  1. OCREVUS [Suspect]
     Active Substance: OCRELIZUMAB
     Indication: Relapsing-remitting multiple sclerosis
     Dosage: SECOND INITIAL DOSE POSTPONED. PLANNED FOR 23/FEB/2022
     Route: 042
     Dates: start: 20220208
  2. OCREVUS [Suspect]
     Active Substance: OCRELIZUMAB
     Route: 042
     Dates: start: 20220315

REACTIONS (6)
  - COVID-19 [Recovered/Resolved]
  - Hordeolum [Recovered/Resolved]
  - Chalazion [Recovered/Resolved]
  - Rosacea [Recovered/Resolved]
  - Fatigue [Recovered/Resolved]
  - Headache [Recovered/Resolved]

NARRATIVE: CASE EVENT DATE: 20220217
